FAERS Safety Report 9161258 (Version 3)
Quarter: 2013Q3

REPORT INFORMATION
  Report Type: Report from Study
  Country: US (occurrence: US)
  Receive Date: 20130313
  Receipt Date: 20130918
  Transmission Date: 20140515
  Serious: Yes (Life-Threatening)
  Sender: FDA-Public Use
  Company Number: US-VIIV HEALTHCARE LIMITED-Z0018939B

PATIENT
  Age: 37 Year
  Sex: Male
  Weight: 107 kg

DRUGS (6)
  1. EFAVIRENZ [Suspect]
     Indication: HIV INFECTION
     Dosage: 600MG PER DAY
     Route: 048
     Dates: start: 20120918, end: 20130304
  2. WELLBUTRIN [Suspect]
     Indication: SUICIDE ATTEMPT
     Dosage: 10TAB SINGLE DOSE
     Route: 048
     Dates: start: 20130303, end: 20130303
  3. XANAX [Suspect]
     Indication: SUICIDE ATTEMPT
     Dosage: 10TAB SINGLE DOSE
     Route: 048
     Dates: start: 20130303, end: 20130303
  4. CLONAZEPAM [Suspect]
     Indication: SUICIDE ATTEMPT
     Dosage: 10TAB SINGLE DOSE
     Route: 048
     Dates: start: 20130303, end: 20130303
  5. EPZICOM [Concomitant]
     Indication: HIV INFECTION
     Dosage: 1TAB AT NIGHT
     Route: 048
     Dates: start: 20120918, end: 20130222
  6. EPZICOM [Concomitant]
     Indication: HIV INFECTION
     Dosage: 1TAB AT NIGHT
     Route: 048
     Dates: start: 20130302, end: 20130304

REACTIONS (1)
  - Suicide attempt [Recovered/Resolved]
